FAERS Safety Report 9331869 (Version 2)
Quarter: 2013Q2

REPORT INFORMATION
  Report Type: Spontaneous
  Country: US (occurrence: None)
  Receive Date: 20130603
  Receipt Date: 20130618
  Transmission Date: 20140414
  Serious: Yes (Life-Threatening)
  Sender: FDA-Public Use
  Company Number: 2013P1006525

PATIENT
  Sex: Female

DRUGS (2)
  1. FENTANYL CITRATE [Suspect]
  2. MIDAZOLAM HCL [Suspect]

REACTIONS (3)
  - Cardio-respiratory arrest [None]
  - Unresponsive to stimuli [None]
  - Product quality issue [None]
